FAERS Safety Report 5847898-8 (Version None)
Quarter: 2008Q3

REPORT INFORMATION
  Report Type: 
  Country: None (occurrence: None)
  Receive Date: 20080814
  Receipt Date: 20080811
  Transmission Date: 20090109
  Serious: Yes (Other)
  Sender: FDA-Public Use
  Company Number: 2008SP016291

PATIENT
  Age: 59 Year
  Sex: Male

DRUGS (4)
  1. RIBAVIRIN [Suspect]
     Indication: HIV INFECTION
     Dates: start: 20080326, end: 20080330
  2. RIBAVIRIN [Suspect]
     Indication: OFF LABEL USE
     Dates: start: 20080326, end: 20080330
  3. VIRAFERONPEG [Suspect]
     Indication: HIV INFECTION
     Dosage: 150 MCG; ; SC
     Route: 058
     Dates: start: 20080328
  4. VIRAFERONPEG [Suspect]
     Indication: OFF LABEL USE
     Dosage: 150 MCG; ; SC
     Route: 058
     Dates: start: 20080328

REACTIONS (1)
  - HYPERVENTILATION [None]
